FAERS Safety Report 17562255 (Version 4)
Quarter: 2020Q2

REPORT INFORMATION
  Report Type: Spontaneous
  Country: GB (occurrence: GB)
  Receive Date: 20200319
  Receipt Date: 20200602
  Transmission Date: 20200713
  Serious: Yes (Hospitalization, Other)
  Sender: FDA-Public Use
  Company Number: GB-MYLANLABS-2020M1028556

PATIENT
  Age: 26 Year
  Sex: Female

DRUGS (12)
  1. ITRACONAZOLE. [Suspect]
     Active Substance: ITRACONAZOLE
     Indication: ASPERGILLUS INFECTION
     Dosage: UNK
  2. VORICONAZOLE. [Suspect]
     Active Substance: VORICONAZOLE
     Indication: ASPERGILLUS INFECTION
     Dosage: UNK
     Dates: start: 201104, end: 201306
  3. TERBINAFINE. [Suspect]
     Active Substance: TERBINAFINE
     Indication: PULMONARY MYCOSIS
     Dosage: UNK
     Dates: start: 201511
  4. TERBINAFINE. [Suspect]
     Active Substance: TERBINAFINE
     Indication: ASPERGILLUS INFECTION
     Dosage: UNK
     Dates: start: 201511
  5. CASPOFUNGIN [Suspect]
     Active Substance: CASPOFUNGIN
     Indication: SCEDOSPORIUM INFECTION
     Dosage: UNK
  6. POSACONAZOLE [Suspect]
     Active Substance: POSACONAZOLE
     Indication: ASPERGILLUS INFECTION
     Dosage: UNK
     Route: 048
     Dates: start: 201405, end: 201607
  7. ITRACONAZOLE. [Suspect]
     Active Substance: ITRACONAZOLE
     Indication: PULMONARY MYCOSIS
     Dosage: UNK
  8. CASPOFUNGIN [Suspect]
     Active Substance: CASPOFUNGIN
     Indication: ASPERGILLUS INFECTION
     Dosage: UNK
  9. CASPOFUNGIN [Suspect]
     Active Substance: CASPOFUNGIN
     Indication: PULMONARY MYCOSIS
     Dosage: UNK
  10. POSACONAZOLE [Suspect]
     Active Substance: POSACONAZOLE
     Indication: SCEDOSPORIUM INFECTION
     Dosage: UNK
     Route: 048
  11. VORICONAZOLE. [Suspect]
     Active Substance: VORICONAZOLE
     Indication: PULMONARY MYCOSIS
     Dosage: UNK
  12. POSACONAZOLE [Suspect]
     Active Substance: POSACONAZOLE
     Indication: PULMONARY MYCOSIS
     Dosage: UNK

REACTIONS (3)
  - Aspergillus infection [Unknown]
  - Scedosporium infection [Unknown]
  - Drug ineffective [Unknown]
